FAERS Safety Report 6535867-4 (Version None)
Quarter: 2010Q1

REPORT INFORMATION
  Report Type: 
  Country: None (occurrence: None)
  Receive Date: 20100106
  Receipt Date: 20091222
  Transmission Date: 20100710
  Serious: Yes (Death, Hospitalization)
  Sender: FDA-Public Use
  Company Number: 1-21137932

PATIENT
  Age: 26 Year
  Sex: Male

DRUGS (3)
  1. CARBAMAZEPINE [Suspect]
     Indication: BIPOLAR DISORDER
  2. UNFRACTIONATED HEPARIN [Suspect]
     Indication: TOXIC EPIDERMAL NECROLYSIS
     Dosage: CONTINUOUS, INTRAVENOUS
     Route: 042
  3. ARGATROBAN [Suspect]
     Indication: HEPARIN-INDUCED THROMBOCYTOPENIA

REACTIONS (16)
  - BLISTER [None]
  - CARDIAC FAILURE [None]
  - COAGULOPATHY [None]
  - DIALYSIS [None]
  - EJECTION FRACTION DECREASED [None]
  - EYE DISORDER [None]
  - GASTROINTESTINAL DISORDER [None]
  - HEPARIN-INDUCED THROMBOCYTOPENIA [None]
  - PAIN IN EXTREMITY [None]
  - PERIPHERAL COLDNESS [None]
  - PULMONARY EMBOLISM [None]
  - PULSE ABSENT [None]
  - RENAL FAILURE [None]
  - RESPIRATORY DISORDER [None]
  - RIGHT VENTRICULAR FAILURE [None]
  - TOXIC EPIDERMAL NECROLYSIS [None]
